FAERS Safety Report 19740740 (Version 5)
Quarter: 2022Q3

REPORT INFORMATION
  Report Type: Report from Study
  Country: RU (occurrence: RU)
  Receive Date: 20210824
  Receipt Date: 20220704
  Transmission Date: 20221026
  Serious: Yes (Hospitalization)
  Sender: FDA-Public Use
  Company Number: RU-PFIZER INC-202100918099

PATIENT
  Age: 67 Year
  Sex: Female
  Weight: 83 kg

DRUGS (8)
  1. PALBOCICLIB [Suspect]
     Active Substance: PALBOCICLIB
     Indication: Breast cancer
     Dosage: 125 MG, 1X/DAY
     Route: 048
     Dates: start: 20201117, end: 20210706
  2. FULVESTRANT [Suspect]
     Active Substance: FULVESTRANT
     Indication: Breast cancer
     Dosage: 500 MG, EVERY 4 WEEKS
     Route: 030
     Dates: start: 20201117, end: 20210615
  3. INAVOLISIB [Suspect]
     Active Substance: INAVOLISIB
     Indication: Breast cancer
     Dosage: 1X/DAY
     Route: 048
     Dates: start: 20201117, end: 20210712
  4. VAMLOSET [Concomitant]
     Indication: Hypertension
     Dosage: 170 MG, 1X/DAY
     Route: 048
     Dates: start: 2019
  5. BISOPROLOL FUMARATE [Concomitant]
     Active Substance: BISOPROLOL FUMARATE
     Indication: Hypertension
     Dosage: 12.5 MG, AS NEEDED (12.5 MG,1 IN 1 AS REQUIRED)
     Route: 048
     Dates: start: 2019
  6. RIVAROXABAN [Concomitant]
     Active Substance: RIVAROXABAN
     Indication: Deep vein thrombosis
     Dosage: 20 MG, 1X/DAY
     Route: 048
     Dates: start: 20210619, end: 20210718
  7. RIVAROXABAN [Concomitant]
     Active Substance: RIVAROXABAN
     Indication: Thrombosis
     Dosage: 15 MG, 2X/DAY
     Route: 048
     Dates: start: 20210719, end: 20210801
  8. RIVAROXABAN [Concomitant]
     Active Substance: RIVAROXABAN
     Dosage: 20 MG, 1X/DAY
     Route: 048
     Dates: start: 20210802

REACTIONS (1)
  - Embolism [Recovered/Resolved]

NARRATIVE: CASE EVENT DATE: 20210713
